FAERS Safety Report 16695066 (Version 1)
Quarter: 2019Q3

REPORT INFORMATION
  Report Type: Report from Study
  Country: CN (occurrence: CN)
  Receive Date: 20190812
  Receipt Date: 20190812
  Transmission Date: 20191004
  Serious: Yes (Hospitalization)
  Sender: FDA-Public Use
  Company Number: CN-ELI_LILLY_AND_COMPANY-CN201908000911

PATIENT
  Age: 55 Year
  Sex: Female

DRUGS (10)
  1. INSULIN, LISPRO [Interacting]
     Active Substance: INSULIN LISPRO
     Dosage: 10 U, DAILY (AT NIGHT)
     Route: 058
  2. INSULIN, LISPRO [Interacting]
     Active Substance: INSULIN LISPRO
     Dosage: 8 U, DAILY (NOON)
     Route: 058
  3. INSULIN, LISPRO [Interacting]
     Active Substance: INSULIN LISPRO
     Dosage: 8 U, DAILY (NIGHT)
     Route: 058
  4. ACARBOSE. [Concomitant]
     Active Substance: ACARBOSE
     Indication: TYPE 2 DIABETES MELLITUS
     Dosage: 2 DOSAGE FORM, BID
     Route: 048
  5. INSULIN, LISPRO [Interacting]
     Active Substance: INSULIN LISPRO
     Dosage: 12 U, EACH MORNING
     Route: 058
  6. INSULIN, LISPRO [Interacting]
     Active Substance: INSULIN LISPRO
     Dosage: 6 U, DAILY (NOON)
     Route: 058
  7. INSULIN, LISPRO [Suspect]
     Active Substance: INSULIN LISPRO
     Indication: TYPE 2 DIABETES MELLITUS
     Dosage: 22 U, EACH MORNING
     Route: 058
  8. INSULIN, LISPRO [Interacting]
     Active Substance: INSULIN LISPRO
     Dosage: 10 U, DAILY (NIGHT)
     Route: 058
  9. INSULIN, LISPRO [Interacting]
     Active Substance: INSULIN LISPRO
     Dosage: 10 U, EACH MORNING
     Route: 058
  10. METFORMIN [Interacting]
     Active Substance: METFORMIN HYDROCHLORIDE
     Indication: TYPE 2 DIABETES MELLITUS
     Dosage: 2 DOSAGE FORM, TID
     Route: 048

REACTIONS (6)
  - Hunger [Recovering/Resolving]
  - Abdominal discomfort [Recovering/Resolving]
  - Blood glucose increased [Recovering/Resolving]
  - Tremor [Recovering/Resolving]
  - Palpitations [Recovering/Resolving]
  - Blood glucose decreased [Recovering/Resolving]
